FAERS Safety Report 20258618 (Version 4)
Quarter: 2022Q1

REPORT INFORMATION
  Report Type: Report from Study
  Country: KR (occurrence: KR)
  Receive Date: 20211230
  Receipt Date: 20220202
  Transmission Date: 20220424
  Serious: Yes (Death, Hospitalization)
  Sender: FDA-Public Use
  Company Number: KR-KARYOPHARM-2021KPT001647

PATIENT
  Age: 75 Year
  Sex: Male
  Weight: 45 kg

DRUGS (12)
  1. SELINEXOR [Suspect]
     Active Substance: SELINEXOR
     Indication: Plasma cell myeloma
     Dosage: 80 MG, WEEKLY
     Route: 048
     Dates: start: 20211111, end: 20211203
  2. DEXAMETHASONE [Concomitant]
     Active Substance: DEXAMETHASONE
     Indication: Plasma cell myeloma
  3. PREDNISOLONE [Concomitant]
     Active Substance: PREDNISOLONE
     Indication: Adrenal insufficiency
     Dosage: 5 MG, QD
     Dates: start: 20170306
  4. LANSOPRAZOLE [Concomitant]
     Active Substance: LANSOPRAZOLE
     Indication: Gastrooesophageal reflux prophylaxis
     Dosage: 15 MG, QD
     Dates: start: 20190425
  5. FOLIC ACID [Concomitant]
     Active Substance: FOLIC ACID
     Dosage: 2 MG
  6. VITAMEDIN [CYANOCOBALAMIN;PYRIDOXINE HYDROCHLORIDE;THIAMINE HYDROCHLOR [Concomitant]
     Dosage: 100 MG
  7. LEVOFLOXACIN [Concomitant]
     Active Substance: LEVOFLOXACIN
     Indication: Infection prophylaxis
     Dosage: 500 MG, QD
     Dates: start: 20211111
  8. SULFAMETHOXAZOLE\TRIMETHOPRIM [Concomitant]
     Active Substance: SULFAMETHOXAZOLE\TRIMETHOPRIM
     Indication: Infection prophylaxis
     Dosage: 480 MG, QD
     Dates: start: 20211111
  9. RAMOSETRON HYDROCHLORIDE [Concomitant]
     Active Substance: RAMOSETRON HYDROCHLORIDE
     Indication: Prophylaxis of nausea and vomiting
     Dosage: 0.1 MG, QD
     Dates: start: 20211111
  10. OXYCODONE HYDROCHLORIDE [Concomitant]
     Active Substance: OXYCODONE HYDROCHLORIDE
     Indication: Back pain
     Dosage: 5 MG, PRN
     Dates: start: 20210527
  11. OXYCODONE HYDROCHLORIDE [Concomitant]
     Active Substance: OXYCODONE HYDROCHLORIDE
     Dosage: 10 MG
  12. VALEX [VALACICLOVIR HYDROCHLORIDE] [Concomitant]
     Dosage: 500 MG

REACTIONS (1)
  - Sepsis [Fatal]

NARRATIVE: CASE EVENT DATE: 20211203
